FAERS Safety Report 8456611-X (Version None)
Quarter: 2012Q2

REPORT INFORMATION
  Report Type: 
  Country: None (occurrence: None)
  Receive Date: 20120621
  Receipt Date: 20120611
  Transmission Date: 20120825
  Serious: Yes (Life-Threatening, Hospitalization, Other)
  Sender: FDA-Public Use
  Company Number: ES-ROCHE-489806

PATIENT
  Age: 62 Year
  Sex: Female
  Weight: 74 kg

DRUGS (6)
  1. HEPARIN [Interacting]
     Indication: PRODUCT USED FOR UNKNOWN INDICATION
     Route: 058
  2. AVASTIN [Suspect]
     Indication: COLORECTAL CANCER
     Dosage: STRENGTH FORMULATION 25MG/ML VIALS
     Route: 042
     Dates: start: 20070207, end: 20070207
  3. AVASTIN [Interacting]
  4. FLUOROURACIL [Concomitant]
     Indication: COLON CANCER
     Route: 042
     Dates: start: 20061201, end: 20070207
  5. LEUCOVORIN CALCIUM [Concomitant]
     Indication: COLON CANCER
     Route: 042
     Dates: start: 20061201, end: 20070207
  6. IRINOTECAN HCL [Concomitant]
     Indication: COLON CANCER
     Route: 042
     Dates: start: 20061201, end: 20070207

REACTIONS (2)
  - PULMONARY HAEMORRHAGE [None]
  - DRUG INTERACTION [None]
